FAERS Safety Report 19731502 (Version 1)
Quarter: 2021Q3

REPORT INFORMATION
  Report Type: Spontaneous
  Country: BR (occurrence: BR)
  Receive Date: 20210820
  Receipt Date: 20210820
  Transmission Date: 20211014
  Serious: Yes (Death, Life-Threatening, Hospitalization, Other)
  Sender: FDA-Public Use
  Company Number: BR-PFIZER INC-202101008489

PATIENT
  Age: 62 Year
  Sex: Male

DRUGS (4)
  1. CICLOSPORIN [Suspect]
     Active Substance: CYCLOSPORINE
     Indication: IMMUNOSUPPRESSANT DRUG THERAPY
     Dosage: UNK
     Dates: start: 20191205
  2. PREDNISONE. [Suspect]
     Active Substance: PREDNISONE
     Indication: IMMUNOSUPPRESSANT DRUG THERAPY
     Dosage: UNK
     Dates: start: 20191205
  3. AZATHIOPRINE. [Suspect]
     Active Substance: AZATHIOPRINE
     Indication: IMMUNOSUPPRESSANT DRUG THERAPY
     Dosage: UNK
     Dates: start: 20191205
  4. METHYLPREDNISOLONE SODIUM SUCCINATE. [Suspect]
     Active Substance: METHYLPREDNISOLONE SODIUM SUCCINATE
     Dosage: UNK

REACTIONS (9)
  - COVID-19 [Fatal]
  - Acute respiratory distress syndrome [Fatal]
  - Pancytopenia [Fatal]
  - Cardiogenic shock [Fatal]
  - Haemophagocytic lymphohistiocytosis [Fatal]
  - Disseminated cytomegaloviral infection [Fatal]
  - Infection reactivation [Fatal]
  - Septic shock [Fatal]
  - American trypanosomiasis [Fatal]

NARRATIVE: CASE EVENT DATE: 2020
